FAERS Safety Report 9053261 (Version 3)
Quarter: 2013Q1

REPORT INFORMATION
  Report Type: Report from Study
  Country: JP (occurrence: JP)
  Receive Date: 20130207
  Receipt Date: 20130305
  Transmission Date: 20140127
  Serious: Yes (Death, Hospitalization)
  Sender: FDA-Public Use
  Company Number: JP-B.I. PHARMACEUTICALS,INC./RIDGEFIELD-2013-BI-02705NB

PATIENT
  Age: 87 None
  Sex: Female
  Weight: 43.5 kg

DRUGS (13)
  1. MIRAPEX LA [Suspect]
     Indication: PARKINSON^S DISEASE
     Dosage: 1.5 MG
     Route: 048
     Dates: start: 20120220, end: 20120925
  2. MIRAPEX LA [Suspect]
     Dosage: 0.75 MG
     Route: 048
     Dates: start: 20120227, end: 20120304
  3. MIRAPEX LA [Suspect]
     Dosage: 1.125 MG
     Route: 048
     Dates: start: 20120305, end: 20120311
  4. MIRAPEX LA [Suspect]
     Dosage: 1.5 MG
     Route: 048
     Dates: start: 20120312, end: 20120924
  5. MIRAPEX LA [Suspect]
     Dosage: 0.75 MG
     Route: 048
     Dates: start: 20120925, end: 20121129
  6. WARFARIN [Suspect]
     Dosage: 2 MG
     Route: 048
     Dates: end: 20121120
  7. TAKEPRON [Concomitant]
     Dosage: 15 MG
     Route: 048
     Dates: end: 20121129
  8. LIPITOR [Concomitant]
     Dosage: 10 MG
     Route: 048
     Dates: end: 20121129
  9. MICARDIS [Concomitant]
     Dosage: 40 MG
     Route: 048
     Dates: end: 20121129
  10. LOXONIN [Concomitant]
     Dosage: 120 MG
     Route: 048
     Dates: end: 20121129
  11. MADOPAR [Concomitant]
     Indication: PARKINSON^S DISEASE
     Route: 048
     Dates: end: 20121129
  12. FP [Concomitant]
     Indication: PARKINSON^S DISEASE
     Dosage: 2.5 MG
     Route: 048
     Dates: end: 20120828
  13. COMTAN [Concomitant]
     Indication: PARKINSON^S DISEASE
     Dosage: 300 MG
     Route: 048
     Dates: start: 20120828, end: 20121129

REACTIONS (3)
  - Cardio-respiratory arrest [Fatal]
  - Oedema peripheral [Recovered/Resolved]
  - Haemorrhage subcutaneous [Recovered/Resolved]
